FAERS Safety Report 16613932 (Version 1)
Quarter: 2019Q3

REPORT INFORMATION
  Report Type: Spontaneous
  Country: GR (occurrence: GR)
  Receive Date: 20190723
  Receipt Date: 20190723
  Transmission Date: 20191004
  Serious: Yes (Other)
  Sender: FDA-Public Use
  Company Number: GR-MYLANLABS-2019M1063495

PATIENT
  Age: 70 Year
  Sex: Male

DRUGS (3)
  1. PROPAFENONE HCL [Suspect]
     Active Substance: PROPAFENONE HYDROCHLORIDE
     Indication: ATRIAL FIBRILLATION
     Dosage: UNK
     Dates: start: 2018
  2. FLECARYTHM [Concomitant]
     Active Substance: FLECAINIDE ACETATE
     Dosage: UNK
  3. ELIQUIS [Suspect]
     Active Substance: APIXABAN
     Indication: ATRIAL FIBRILLATION
     Dosage: 5 MILLIGRAM
     Dates: start: 2018

REACTIONS (2)
  - Condition aggravated [Unknown]
  - Autoimmune hepatitis [Unknown]
